FAERS Safety Report 16491368 (Version 2)
Quarter: 2021Q4

REPORT INFORMATION
  Report Type: Spontaneous
  Country: SE (occurrence: SE)
  Receive Date: 20190628
  Receipt Date: 20211026
  Transmission Date: 20220303
  Serious: Yes (Hospitalization, Other)
  Sender: FDA-Public Use
  Company Number: SE-SUN PHARMACEUTICAL INDUSTRIES LTD-2019RR-211960

PATIENT
  Age: 48 Year
  Sex: Male

DRUGS (7)
  1. VENLAFAXINE [Suspect]
     Active Substance: VENLAFAXINE HYDROCHLORIDE
     Indication: Product used for unknown indication
     Dosage: 20 GRAM, IN TOTAL
     Route: 048
  2. ZOLPIDEM [Suspect]
     Active Substance: ZOLPIDEM TARTRATE
     Indication: Product used for unknown indication
     Dosage: 450 MILLIGRAM, IN TOTAL
     Route: 065
  3. NOREPINEPHRINE [Suspect]
     Active Substance: NOREPINEPHRINE
     Indication: Blood pressure decreased
     Dosage: UNK
     Route: 042
  4. DOBUTAMINE [Suspect]
     Active Substance: DOBUTAMINE HYDROCHLORIDE
     Indication: Blood pressure decreased
     Dosage: UNK
     Route: 065
  5. PROPIOMAZINE [Suspect]
     Active Substance: PROPIOMAZINE
     Indication: Product used for unknown indication
     Dosage: 250 MILLIGRAM, IN TOTAL
     Route: 065
  6. EPINEPHRINE [Suspect]
     Active Substance: EPINEPHRINE
     Indication: Cardiac arrest
     Dosage: 1 MILLIGRAM, THREE DOSES
     Route: 042
  7. EPINEPHRINE [Suspect]
     Active Substance: EPINEPHRINE
     Dosage: 1 UG/KG/MIN
     Route: 065

REACTIONS (9)
  - Overdose [Unknown]
  - Toxicity to various agents [Recovered/Resolved]
  - Generalised tonic-clonic seizure [Recovered/Resolved]
  - Stress cardiomyopathy [Recovered/Resolved]
  - Hypokinesia [Recovered/Resolved]
  - Cardiac arrest [Recovered/Resolved]
  - Lactic acidosis [Recovered/Resolved]
  - Drug ineffective [Unknown]
  - Stress cardiomyopathy [Unknown]
